FAERS Safety Report 5641108-2 (Version None)
Quarter: 2008Q1

REPORT INFORMATION
  Report Type: 
  Country: None (occurrence: None)
  Receive Date: 20080227
  Receipt Date: 20080220
  Transmission Date: 20080703
  Serious: Yes (Death)
  Sender: FDA-Public Use
  Company Number: JP-AVENTIS-200713448JP

PATIENT
  Age: 67 Year
  Sex: Female
  Weight: 52 kg

DRUGS (11)
  1. TAXOTERE [Suspect]
     Route: 041
     Dates: start: 20070903, end: 20071105
  2. DECADRON [Concomitant]
     Indication: NAUSEA
     Route: 048
     Dates: start: 20070903, end: 20071115
  3. DECADRON [Concomitant]
  4. DECADRON [Concomitant]
     Indication: VOMITING
     Route: 048
     Dates: start: 20070903, end: 20071115
  5. DECADRON [Concomitant]
  6. NAUZELIN [Concomitant]
     Indication: NAUSEA
     Route: 048
     Dates: start: 20070903, end: 20071115
  7. NAUZELIN [Concomitant]
     Indication: VOMITING
     Route: 048
     Dates: start: 20070903, end: 20071115
  8. FLAVITAN [Concomitant]
     Route: 048
     Dates: start: 20070903, end: 20071115
  9. MAGMITT [Concomitant]
     Indication: CONSTIPATION
     Route: 048
     Dates: start: 20070903, end: 20071115
  10. GASTER D [Concomitant]
     Indication: GASTRITIS
     Route: 048
     Dates: start: 20070925, end: 20071115
  11. LASIX [Concomitant]
     Indication: OEDEMA
     Route: 048
     Dates: start: 20071105, end: 20071115

REACTIONS (1)
  - INTERSTITIAL LUNG DISEASE [None]
